FAERS Safety Report 25491075 (Version 1)
Quarter: 2025Q2

REPORT INFORMATION
  Report Type: Spontaneous
  Country: US (occurrence: US)
  Receive Date: 20250629
  Receipt Date: 20250629
  Transmission Date: 20250717
  Serious: No
  Sender: SANOFI AVENTIS
  Company Number: US-SA-2025SA180113

PATIENT
  Age: 57 Year
  Sex: Female

DRUGS (4)
  1. DUPIXENT [Suspect]
     Active Substance: DUPILUMAB
     Indication: Chronic obstructive pulmonary disease
     Dosage: 300 MG, QOW
     Route: 058
     Dates: start: 202501
  2. DUPIXENT [Suspect]
     Active Substance: DUPILUMAB
     Indication: Asthma
  3. STELARA [Concomitant]
     Active Substance: USTEKINUMAB
  4. NUCALA [Concomitant]
     Active Substance: MEPOLIZUMAB
     Indication: Asthma

REACTIONS (3)
  - Abdominal pain [Unknown]
  - Chronic obstructive pulmonary disease [Unknown]
  - Asthma [Unknown]

NARRATIVE: CASE EVENT DATE: 20250501
